FAERS Safety Report 23442782 (Version 1)
Quarter: 2024Q1

REPORT INFORMATION
  Report Type: Spontaneous
  Country: KR (occurrence: KR)
  Receive Date: 20240125
  Receipt Date: 20240125
  Transmission Date: 20240410
  Serious: Yes (Other)
  Sender: FDA-Public Use
  Company Number: KR-KYOWAKIRIN-2024KK000870

PATIENT

DRUGS (1)
  1. CRYSVITA [Suspect]
     Active Substance: BUROSUMAB-TWZA
     Indication: Hereditary hypophosphataemic rickets
     Dosage: Q2W
     Route: 058
     Dates: start: 20230731

REACTIONS (2)
  - Nephrocalcinosis [Not Recovered/Not Resolved]
  - Urine calcium increased [Not Recovered/Not Resolved]
